FAERS Safety Report 21616082 (Version 4)
Quarter: 2022Q4

REPORT INFORMATION
  Report Type: Report from Study
  Country: CH (occurrence: CH)
  Receive Date: 20221118
  Receipt Date: 20221213
  Transmission Date: 20230113
  Serious: Yes (Hospitalization)
  Sender: FDA-Public Use
  Company Number: CH-ABBVIE-4189132

PATIENT
  Sex: Male
  Weight: 59 kg

DRUGS (10)
  1. CARBIDOPA\LEVODOPA [Suspect]
     Active Substance: CARBIDOPA\LEVODOPA
     Indication: Parkinson^s disease
     Dosage: MD: 7.0 ML, CRD: 3.7 ML/H, CRN: 0 ML/H, ED: 1.7 ML
     Route: 050
     Dates: start: 20221003, end: 20221116
  2. CARBIDOPA\LEVODOPA [Suspect]
     Active Substance: CARBIDOPA\LEVODOPA
     Dosage: MD: 8.0 ML, CRD: 4.0 ML/H, CRN: 0 ML/H, ED: 1.7 ML
     Dates: start: 20221129
  3. CARBIDOPA\LEVODOPA [Suspect]
     Active Substance: CARBIDOPA\LEVODOPA
     Dosage: 16H THERAPY,
     Route: 050
     Dates: start: 20210302, end: 2021
  4. CARBIDOPA\LEVODOPA [Suspect]
     Active Substance: CARBIDOPA\LEVODOPA
     Dosage: MD: 9 ML, CRD: 4.1 ML/H, CRN: 0 ML/H, ED: 1.5 ML
     Route: 050
     Dates: start: 20211122, end: 20221003
  5. CARBIDOPA\LEVODOPA [Suspect]
     Active Substance: CARBIDOPA\LEVODOPA
     Dosage: MD: 8.0 ML, CRD: 4.0 ML/H, CRN: 0 ML/H, ED: 1.7 ML
     Route: 050
     Dates: start: 20221116, end: 20221122
  6. CARBIDOPA\LEVODOPA [Suspect]
     Active Substance: CARBIDOPA\LEVODOPA
     Dosage: MD: 9 ML, CRD: 4.1 ML/H, CRN: 0 ML/H, ED: 1.5 ML, 16H THERAPY
     Route: 050
     Dates: start: 20211010, end: 20211122
  7. CARBIDOPA\LEVODOPA [Concomitant]
     Active Substance: CARBIDOPA\LEVODOPA
     Indication: Parkinson^s disease
     Dosage: 50/200
     Dates: start: 20210302
  8. TRAZODONE HYDROCHLORIDE [Concomitant]
     Active Substance: TRAZODONE HYDROCHLORIDE
     Indication: Product used for unknown indication
  9. STALEVO [Suspect]
     Active Substance: CARBIDOPA\ENTACAPONE\LEVODOPA
     Indication: Product used for unknown indication
     Dosage: 100/25/200
     Route: 048
     Dates: start: 20221123, end: 20221129
  10. Trazodone hydrochloride (Trittico) [Concomitant]
     Indication: Product used for unknown indication

REACTIONS (8)
  - Device dislocation [Recovered/Resolved]
  - Helicobacter infection [Recovering/Resolving]
  - Medical device site ulcer [Not Recovered/Not Resolved]
  - Energy increased [Recovered/Resolved]
  - Vomiting [Recovered/Resolved]
  - Device issue [Recovered/Resolved]
  - Device physical property issue [Recovered/Resolved]
  - Abdominal pain [Unknown]

NARRATIVE: CASE EVENT DATE: 20220101
